FAERS Safety Report 6291692-3 (Version None)
Quarter: 2009Q3

REPORT INFORMATION
  Report Type: 
  Country: None (occurrence: None)
  Receive Date: 20090730
  Receipt Date: 20090722
  Transmission Date: 20100115
  Serious: Yes (Life-Threatening)
  Sender: FDA-Public Use
  Company Number: JP-ELI_LILLY_AND_COMPANY-JP200907002893

PATIENT
  Age: 58 Year
  Sex: Male

DRUGS (1)
  1. CIALIS [Suspect]
     Dosage: 100 MG, UNK
     Route: 048
     Dates: start: 20090622

REACTIONS (1)
  - HEPATITIS FULMINANT [None]
